FAERS Safety Report 14787990 (Version 1)
Quarter: 2018Q2

REPORT INFORMATION
  Report Type: Spontaneous
  Country: US (occurrence: US)
  Receive Date: 20180422
  Receipt Date: 20180422
  Transmission Date: 20180711
  Serious: No
  Sender: FDA-Public Use
  Company Number: US-JNJFOC-20180340496

PATIENT
  Sex: Male

DRUGS (1)
  1. TYLENOL REGULAR STRENGTH [Suspect]
     Active Substance: ACETAMINOPHEN
     Indication: PAIN IN EXTREMITY
     Dosage: AS NEEDED
     Route: 048

REACTIONS (2)
  - Inappropriate schedule of drug administration [Unknown]
  - Underdose [Unknown]
